FAERS Safety Report 17809724 (Version 5)
Quarter: 2020Q4

REPORT INFORMATION
  Report Type: Report from Study
  Country: US (occurrence: US)
  Receive Date: 20200520
  Receipt Date: 20201203
  Transmission Date: 20210113
  Serious: Yes (Other)
  Sender: FDA-Public Use
  Company Number: US-PFIZER INC-2020195721

PATIENT
  Age: 65 Year
  Sex: Female

DRUGS (7)
  1. METFORMIN [Suspect]
     Active Substance: METFORMIN HYDROCHLORIDE
     Dosage: UNK
  2. IMBRUVICA [Suspect]
     Active Substance: IBRUTINIB
     Dosage: 420 MG, 1X/DAY
     Route: 048
     Dates: start: 201905
  3. NORVASC [Suspect]
     Active Substance: AMLODIPINE BESYLATE
     Dosage: UNK
  4. IMBRUVICA [Suspect]
     Active Substance: IBRUTINIB
     Indication: CHRONIC LYMPHOCYTIC LEUKAEMIA
     Dosage: 420 MG, 1X/DAY
     Route: 048
     Dates: start: 201905
  5. ESCITALOPRAM [Concomitant]
     Active Substance: ESCITALOPRAM OXALATE
     Dosage: UNK
  6. IMBRUVICA [Suspect]
     Active Substance: IBRUTINIB
     Dosage: 420 MG, 1X/DAY
     Route: 048
     Dates: start: 20190507
  7. IMBRUVICA [Suspect]
     Active Substance: IBRUTINIB
     Dosage: 420 MG, 1X/DAY
     Route: 048
     Dates: start: 20190508

REACTIONS (32)
  - Nerve compression [Not Recovered/Not Resolved]
  - Peripheral swelling [Unknown]
  - Vitreous floaters [Recovered/Resolved]
  - Night sweats [Unknown]
  - Flank pain [Not Recovered/Not Resolved]
  - Decreased appetite [Not Recovered/Not Resolved]
  - Erythema [Unknown]
  - Gout [Unknown]
  - Alopecia [Not Recovered/Not Resolved]
  - Heart rate increased [Unknown]
  - Diarrhoea [Unknown]
  - Weight decreased [Not Recovered/Not Resolved]
  - Haemoglobin decreased [Unknown]
  - Petechiae [Recovering/Resolving]
  - Rash macular [Unknown]
  - Nasopharyngitis [Unknown]
  - Blood viscosity decreased [Unknown]
  - Joint swelling [Unknown]
  - White blood cell count increased [Recovering/Resolving]
  - Skin haemorrhage [Unknown]
  - Pharyngeal erythema [Not Recovered/Not Resolved]
  - Groin infection [Not Recovered/Not Resolved]
  - Blood glucose decreased [Unknown]
  - Chills [Unknown]
  - Abdominal pain [Not Recovered/Not Resolved]
  - Blood pressure abnormal [Unknown]
  - Blood potassium increased [Unknown]
  - Insomnia [Not Recovered/Not Resolved]
  - Rash [Not Recovered/Not Resolved]
  - Fatigue [Unknown]
  - Sleep disorder [Unknown]
  - Protein total increased [Unknown]

NARRATIVE: CASE EVENT DATE: 20190511
